FAERS Safety Report 16027523 (Version 4)
Quarter: 2019Q2

REPORT INFORMATION
  Report Type: Report from Study
  Country: US (occurrence: US)
  Receive Date: 20190304
  Receipt Date: 20190516
  Transmission Date: 20190711
  Serious: Yes (Life-Threatening, Hospitalization, Other)
  Sender: FDA-Public Use
  Company Number: US-BRISTOL-MYERS SQUIBB COMPANY-BMS-2019-020316

PATIENT
  Age: 37 Year
  Sex: Male
  Weight: 111.11 kg

DRUGS (2)
  1. NIVOLUMAB [Suspect]
     Active Substance: NIVOLUMAB
     Indication: COLORECTAL CANCER
     Dosage: 240 MILLIGRAM, Q2WK
     Route: 042
     Dates: start: 20180326, end: 20190211
  2. IPILIMUMAB [Suspect]
     Active Substance: IPILIMUMAB
     Indication: COLORECTAL CANCER
     Dosage: 128 MILLIGRAM, Q6WK
     Route: 042
     Dates: start: 20180326, end: 20190114

REACTIONS (26)
  - Influenza A virus test positive [Unknown]
  - Sepsis [Unknown]
  - Pyrexia [Recovered/Resolved]
  - Cough [Unknown]
  - Splenomegaly [Unknown]
  - Pleural effusion [Unknown]
  - Fatigue [Unknown]
  - Febrile neutropenia [Unknown]
  - Pain in extremity [Unknown]
  - Pulmonary mass [Unknown]
  - Oedema peripheral [Unknown]
  - Dyspnoea [Not Recovered/Not Resolved]
  - Wheezing [Unknown]
  - Anaemia [Unknown]
  - Acute respiratory failure [Unknown]
  - Lymphocyte count decreased [Unknown]
  - Tachypnoea [Unknown]
  - Atelectasis [Unknown]
  - Rhonchi [Unknown]
  - Malaise [Unknown]
  - Deep vein thrombosis [Unknown]
  - Asthenia [Unknown]
  - Pneumonia staphylococcal [Unknown]
  - Sinus tachycardia [Unknown]
  - Bronchitis [Unknown]
  - Red man syndrome [Unknown]

NARRATIVE: CASE EVENT DATE: 20190221
